FAERS Safety Report 8687567 (Version 3)
Quarter: 2012Q4

REPORT INFORMATION
  Report Type: 
  Country: SG (occurrence: SG)
  Receive Date: 20120727
  Receipt Date: 20121113
  Transmission Date: 20130627
  Serious: Yes (Death)
  Sender: FDA-Public Use
  Company Number: SG-CELGENEUS-141-21880-12072247

PATIENT
  Age: 74 Year
  Sex: Female

DRUGS (3)
  1. REVLIMID [Suspect]
     Indication: MULTIPLE MYELOMA
     Route: 048
     Dates: start: 20111219, end: 201204
  2. BORTEZOMIB [Concomitant]
     Indication: MULTIPLE MYELOMA
     Route: 058
     Dates: start: 20111219, end: 201206
  3. DEXAMETHASONE [Concomitant]
     Indication: MULTIPLE MYELOMA
     Route: 065
     Dates: start: 20111219, end: 201206

REACTIONS (1)
  - Plasma cell myeloma [Fatal]
